FAERS Safety Report 9878632 (Version 2)
Quarter: 2014Q1

REPORT INFORMATION
  Report Type: Spontaneous
  Country: US (occurrence: US)
  Receive Date: 20140206
  Receipt Date: 20140206
  Transmission Date: 20141002
  Serious: No
  Sender: FDA-Public Use
  Company Number: US-ALLERGAN-1307890US

PATIENT
  Age: 79 Year
  Sex: Female

DRUGS (4)
  1. BOTOX COSMETIC [Suspect]
     Indication: SKIN WRINKLING
     Dosage: UNK, SINGLE
     Route: 030
     Dates: start: 201305, end: 201305
  2. BOTOX COSMETIC [Suspect]
     Indication: SKIN WRINKLING
     Dosage: UNK, SINGLE
     Route: 030
     Dates: start: 201305, end: 201305
  3. PANTOPRAZOLE [Concomitant]
     Indication: PRODUCT USED FOR UNKNOWN INDICATION
  4. ALEVE [Concomitant]
     Indication: ARTHRITIS
     Dosage: UNK, PRN

REACTIONS (4)
  - Dry skin [Recovering/Resolving]
  - Pruritus [Recovering/Resolving]
  - Dry mouth [Recovering/Resolving]
  - Vision blurred [Recovering/Resolving]
